FAERS Safety Report 7824553-6 (Version None)
Quarter: 2011Q4

REPORT INFORMATION
  Report Type: 
  Country: None (occurrence: None)
  Receive Date: 20111019
  Receipt Date: 20111005
  Transmission Date: 20120403
  Serious: Yes (Hospitalization, Other)
  Sender: FDA-Public Use
  Company Number: US-ELI_LILLY_AND_COMPANY-US201009006000

PATIENT
  Sex: Male

DRUGS (11)
  1. FORTEO [Suspect]
     Dosage: 20 UG, DAILY (1/D)
     Route: 058
  2. BENTYL [Concomitant]
     Dosage: 20 MG, QID
  3. VITAMIN D [Concomitant]
     Dosage: 2000 IU, QD
  4. FORTEO [Suspect]
     Dosage: 20 UG, DAILY (1/D)
     Route: 058
  5. FORTEO [Suspect]
     Dosage: 20 UG, QD
     Route: 058
  6. FORTEO [Suspect]
     Indication: OSTEOPOROSIS
     Dosage: 20 UG, DAILY (1/D)
     Route: 058
     Dates: start: 20100901
  7. FORTEO [Suspect]
     Dosage: 20 UG, QD
     Route: 058
  8. PRILOSEC [Concomitant]
     Dosage: 20 MG, QD
  9. FORTEO [Suspect]
     Dosage: 20 UG, QD
     Route: 058
  10. TUSSIONEX [Concomitant]
     Dosage: UNK, BID
  11. FORTEO [Suspect]
     Dosage: 20 UG, QD
     Route: 058

REACTIONS (19)
  - BONE PAIN [None]
  - GAIT DISTURBANCE [None]
  - PAIN [None]
  - ARTHRALGIA [None]
  - AMNESIA [None]
  - WEIGHT INCREASED [None]
  - INJECTION SITE DISCOMFORT [None]
  - ASTHENIA [None]
  - HEART RATE DECREASED [None]
  - DYSPNOEA [None]
  - HELICOBACTER INFECTION [None]
  - ILL-DEFINED DISORDER [None]
  - THERAPEUTIC RESPONSE DECREASED [None]
  - BALANCE DISORDER [None]
  - HEADACHE [None]
  - DYSPEPSIA [None]
  - SYNCOPE [None]
  - DIZZINESS POSTURAL [None]
  - COUGH [None]
